FAERS Safety Report 8597996 (Version 3)
Quarter: 2014Q1

REPORT INFORMATION
  Report Type: Spontaneous
  Country: US (occurrence: US)
  Receive Date: 20120605
  Receipt Date: 20140113
  Transmission Date: 20141002
  Serious: Yes (Hospitalization, Disabling)
  Sender: FDA-Public Use
  Company Number: US-ASTRAZENECA-2012SE34471

PATIENT
  Age: 52 Year
  Sex: Female
  Weight: 124.7 kg

DRUGS (12)
  1. NEXIUM [Suspect]
     Indication: GASTROOESOPHAGEAL REFLUX DISEASE
     Route: 048
     Dates: start: 2008, end: 2012
  2. PRIMAQUINE [Concomitant]
     Indication: HORMONE REPLACEMENT THERAPY
  3. HYDROCODONE/APAP [Concomitant]
     Dosage: 5-325 MG
     Dates: start: 20120618
  4. HYDROCODONE/APAP [Concomitant]
     Dosage: 10-325 MG
     Dates: start: 20120629
  5. ALPRAZOLAM [Concomitant]
     Dates: start: 20121018
  6. LEVETIRACETAM [Concomitant]
     Dates: start: 20100420
  7. TOPIRAMATE [Concomitant]
     Dates: start: 20100420
  8. CRESTOR [Concomitant]
     Route: 048
     Dates: start: 20100428
  9. SYNTHROID [Concomitant]
     Route: 048
     Dates: start: 201210
  10. ALDACTONE [Concomitant]
     Route: 048
     Dates: start: 201210
  11. WARFARIN [Concomitant]
     Dates: start: 20100420
  12. DEXAMETHASONE [Concomitant]
     Dosage: 1.5 MG 1 WEEK IN PROGRESSIVELY DECREASING DOSES
     Dates: start: 20100420

REACTIONS (19)
  - Ankle fracture [Unknown]
  - Breast disorder [Unknown]
  - Uterine disorder [Unknown]
  - Myocardial infarction [Unknown]
  - Deafness [Unknown]
  - Arthropathy [Unknown]
  - Osteoporosis [Unknown]
  - Multiple fractures [Unknown]
  - Chest pain [Unknown]
  - Foot fracture [Unknown]
  - Adrenal insufficiency [Unknown]
  - Calcium deficiency [Unknown]
  - Cataract [Unknown]
  - Arthritis [Unknown]
  - Cardiovascular disorder [Unknown]
  - Diabetes mellitus [Unknown]
  - Peripheral arterial occlusive disease [Unknown]
  - Arteriosclerosis coronary artery [Unknown]
  - Breast mass [Unknown]
